FAERS Safety Report 8319429 (Version 11)
Quarter: 2016Q1

REPORT INFORMATION
  Report Type: Report from Study
  Country: US (occurrence: US)
  Receive Date: 20120103
  Receipt Date: 20160322
  Transmission Date: 20160526
  Serious: Yes (Life-Threatening, Hospitalization)
  Sender: FDA-Public Use
  Company Number: PHHO2011US021723

PATIENT
  Age: 52 Year
  Sex: Male
  Weight: 77.98 kg

DRUGS (6)
  1. ACETYLSALICYLIC ACID [Suspect]
     Active Substance: ASPIRIN
     Indication: CARDIOVASCULAR EVENT PROPHYLAXIS
     Dosage: 81 MG, QD
     Route: 048
     Dates: end: 20111127
  2. BLINDED ACZ885 [Suspect]
     Active Substance: CANAKINUMAB
     Indication: CARDIOVASCULAR EVENT PROPHYLAXIS
     Dosage: CODE NOT BROKEN
     Route: 058
     Dates: start: 20110721, end: 20130709
  3. BLINDED ACZ885 [Suspect]
     Active Substance: CANAKINUMAB
     Indication: CARDIOVASCULAR EVENT PROPHYLAXIS
     Dosage: CODE NOT BROKEN
     Route: 058
     Dates: start: 20110721, end: 20130709
  4. BLINDED PLACEBO [Suspect]
     Active Substance: INVESTIGATIONAL PRODUCT
     Indication: CARDIOVASCULAR EVENT PROPHYLAXIS
     Dosage: CODE NOT BROKEN
     Route: 058
     Dates: start: 20110721, end: 20130709
  5. PLAVIX [Concomitant]
     Active Substance: CLOPIDOGREL BISULFATE
     Indication: CARDIOVASCULAR EVENT PROPHYLAXIS
     Dosage: 75 MG, QD
     Route: 048
     Dates: start: 2009
  6. BLINDED NO TREATMENT RECEIVED [Suspect]
     Active Substance: INVESTIGATIONAL PRODUCT
     Indication: CARDIOVASCULAR EVENT PROPHYLAXIS
     Dosage: CODE NOT BROKEN
     Route: 058
     Dates: start: 20110721, end: 20130709

REACTIONS (10)
  - Gastritis erosive [Recovered/Resolved]
  - Erosive duodenitis [Recovered/Resolved]
  - Gastric ulcer [Recovered/Resolved]
  - Non-cardiac chest pain [Recovered/Resolved]
  - Dizziness [Recovered/Resolved]
  - Lung carcinoma cell type unspecified stage III [Not Recovered/Not Resolved]
  - Pneumonia [Recovered/Resolved]
  - Non-cardiac chest pain [Recovered/Resolved]
  - Cerumen impaction [Recovered/Resolved]
  - Mastoiditis [Recovered/Resolved]

NARRATIVE: CASE EVENT DATE: 20111116
